FAERS Safety Report 22262535 (Version 3)
Quarter: 2023Q2

REPORT INFORMATION
  Report Type: Spontaneous
  Country: US (occurrence: US)
  Receive Date: 20230428
  Receipt Date: 20230526
  Transmission Date: 20230721
  Serious: No
  Sender: FDA-Public Use
  Company Number: US-UNITED THERAPEUTICS-UNT-2023-011747

PATIENT
  Age: 31 Year
  Sex: Female
  Weight: 52.608 kg

DRUGS (2)
  1. REMODULIN [Suspect]
     Active Substance: TREPROSTINIL
     Indication: Pulmonary arterial hypertension
     Dosage: 0.016 ?G/KG, CONTINUING (SELF-FILL CASSETTE WITH 2.2 ML WITH RATE OF 24 MCL/HOUR)
     Route: 058
  2. REMODULIN [Suspect]
     Active Substance: TREPROSTINIL
     Dosage: UNK, CONTINUING
     Route: 058
     Dates: start: 20230331

REACTIONS (7)
  - Device failure [Unknown]
  - Device failure [Unknown]
  - Infusion site haemorrhage [Unknown]
  - Infusion site pain [Unknown]
  - Infusion site swelling [Unknown]
  - Device dislocation [Recovered/Resolved]
  - Infusion site induration [Unknown]

NARRATIVE: CASE EVENT DATE: 20230401
